FAERS Safety Report 18211891 (Version 3)
Quarter: 2020Q4

REPORT INFORMATION
  Report Type: Report from Study
  Country: US (occurrence: US)
  Receive Date: 20200831
  Receipt Date: 20201020
  Transmission Date: 20210113
  Serious: Yes (Other)
  Sender: FDA-Public Use
  Company Number: US-GILEAD-2020-0477670

PATIENT
  Sex: Male

DRUGS (3)
  1. XANAX [Concomitant]
     Active Substance: ALPRAZOLAM
  2. AMBRISENTAN [Suspect]
     Active Substance: AMBRISENTAN
     Indication: PULMONARY HYPERTENSION
     Dosage: 10 MG, QD
     Route: 065
     Dates: start: 20200630
  3. OFEV [Concomitant]
     Active Substance: NINTEDANIB

REACTIONS (17)
  - Panic attack [Not Recovered/Not Resolved]
  - Depression [Not Recovered/Not Resolved]
  - Anger [Not Recovered/Not Resolved]
  - Dyspnoea [Unknown]
  - Condition aggravated [Not Recovered/Not Resolved]
  - Dyspnoea exertional [Unknown]
  - Syncope [Unknown]
  - Weight decreased [Unknown]
  - Sleep disorder [Not Recovered/Not Resolved]
  - Heart rate increased [Not Recovered/Not Resolved]
  - Fall [Unknown]
  - Oxygen saturation decreased [Unknown]
  - Dizziness [Unknown]
  - Oxygen consumption increased [Unknown]
  - Anxiety [Not Recovered/Not Resolved]
  - Blood pressure decreased [Unknown]
  - Morbid thoughts [Not Recovered/Not Resolved]
